FAERS Safety Report 7745222-7 (Version None)
Quarter: 2011Q3

REPORT INFORMATION
  Report Type: 
  Country: None (occurrence: None)
  Receive Date: 20110913
  Receipt Date: 20110902
  Transmission Date: 20111222
  Serious: Yes (Life-Threatening, Hospitalization)
  Sender: FDA-Public Use
  Company Number: FR-JNJFOC-20110903872

PATIENT
  Sex: Male

DRUGS (13)
  1. ACETAMINOPHEN [Concomitant]
     Route: 065
  2. COZAAR [Concomitant]
     Route: 065
  3. ACETAMINOPHEN AND TRAMADOL HCL [Suspect]
     Indication: PAIN
     Dosage: FILM-COATED TABLETS
     Route: 048
     Dates: start: 20110523, end: 20110526
  4. SINEMET [Concomitant]
     Route: 065
  5. CLONAZEPAM [Concomitant]
     Route: 065
  6. ESOMEPRAZOLE SODIUM [Concomitant]
     Route: 065
  7. FLUTICASONE PROPIONATE [Concomitant]
     Route: 065
  8. LANTUS [Concomitant]
     Route: 065
  9. CORDARONE [Concomitant]
     Route: 065
  10. TRIVASTAL [Concomitant]
     Route: 065
  11. DESFERAL [Concomitant]
     Route: 065
  12. FUROSEMIDE [Concomitant]
     Route: 065
  13. TAMSULOSIN HCL [Concomitant]
     Route: 065

REACTIONS (6)
  - MYOCLONUS [None]
  - HYPERCAPNIA [None]
  - ALTERED STATE OF CONSCIOUSNESS [None]
  - ASTHENIA [None]
  - CARDIOPULMONARY FAILURE [None]
  - CHRONIC OBSTRUCTIVE PULMONARY DISEASE [None]
